FAERS Safety Report 5329472-5 (Version None)
Quarter: 2007Q2

REPORT INFORMATION
  Report Type: 
  Country: None (occurrence: None)
  Receive Date: 20070221
  Receipt Date: 20070221
  Transmission Date: 20071010
  Serious: Yes (Other)
  Sender: FDA-Public Use
  Company Number: BDI-008390

PATIENT
  Age: 59 Year
  Sex: Female

DRUGS (2)
  1. ISOVUE-370 [Suspect]
     Indication: COMPUTERISED TOMOGRAM ABDOMEN
     Dosage: 30 ML ONCE IV
     Route: 042
     Dates: start: 20060629, end: 20060629
  2. ISOVUE-370 [Suspect]
     Indication: COMPUTERISED TOMOGRAM THORAX
     Dosage: 30 ML ONCE IV
     Route: 042
     Dates: start: 20060629, end: 20060629

REACTIONS (7)
  - BLOOD PRESSURE INCREASED [None]
  - CHEST PAIN [None]
  - DIZZINESS [None]
  - DYSPNOEA [None]
  - ERYTHEMA [None]
  - PAIN IN EXTREMITY [None]
  - TREMOR [None]
